FAERS Safety Report 23734063 (Version 4)
Quarter: 2024Q4

REPORT INFORMATION
  Report Type: Spontaneous
  Country: JP (occurrence: JP)
  Receive Date: 20240412
  Receipt Date: 20241115
  Transmission Date: 20250115
  Serious: Yes (Death, Hospitalization, Other)
  Sender: MERCK
  Company Number: JP-MSD-M2023-31858

PATIENT
  Age: 58 Year
  Sex: Female

DRUGS (2)
  1. KEYTRUDA [Suspect]
     Active Substance: PEMBROLIZUMAB
     Indication: Endometrial adenocarcinoma
     Dosage: 200 MILLIGRAM, Q3W
     Route: 041
     Dates: start: 20230720, end: 20230720
  2. LENVATINIB MESYLATE [Suspect]
     Active Substance: LENVATINIB MESYLATE
     Indication: Endometrial adenocarcinoma
     Dosage: 20 MILLIGRAM, QD
     Route: 048
     Dates: start: 20230720, end: 20230802

REACTIONS (7)
  - Skin disorder [Unknown]
  - Immune-mediated myocarditis [Recovering/Resolving]
  - Malignant neoplasm progression [Fatal]
  - Prerenal failure [Unknown]
  - Hypokalaemia [Unknown]
  - Hepatic function abnormal [Recovering/Resolving]
  - Hypertension [Unknown]

NARRATIVE: CASE EVENT DATE: 20230101
